FAERS Safety Report 6812240-2 (Version None)
Quarter: 2010Q3

REPORT INFORMATION
  Report Type: 
  Country: None (occurrence: None)
  Receive Date: 20100701
  Receipt Date: 20100630
  Transmission Date: 20110219
  Serious: Yes (Other)
  Sender: FDA-Public Use
  Company Number: US-ALLERGAN-1005541US

PATIENT
  Age: 54 Year
  Sex: Male

DRUGS (2)
  1. RESTASIS [Suspect]
     Indication: DRY EYE
     Dosage: 1 GTT, BID
     Route: 047
     Dates: start: 20100301
  2. UNSPECIFIED ARTIFICIAL TEARS [Concomitant]
     Indication: DRY EYE

REACTIONS (2)
  - RETINAL ANEURYSM [None]
  - RETINAL VEIN OCCLUSION [None]
